FAERS Safety Report 18416407 (Version 2)
Quarter: 2020Q4

REPORT INFORMATION
  Report Type: Report from Study
  Country: CA (occurrence: CA)
  Receive Date: 20201022
  Receipt Date: 20201026
  Transmission Date: 20210114
  Serious: Yes (Hospitalization)
  Sender: FDA-Public Use
  Company Number: CA-TOLMAR, INC.-20CA023365

PATIENT
  Age: 86 Year
  Sex: Male

DRUGS (2)
  1. ELIGARD [Suspect]
     Active Substance: LEUPROLIDE ACETATE
     Indication: PROSTATE CANCER
     Dosage: 22.5 MG, Q 3 MONTH
     Route: 058
     Dates: start: 20200718
  2. ELIGARD [Suspect]
     Active Substance: LEUPROLIDE ACETATE
     Dosage: 22.5 MG, Q 3 MONTH
     Route: 058
     Dates: start: 20200425

REACTIONS (1)
  - Cardiovascular disorder [Unknown]

NARRATIVE: CASE EVENT DATE: 20201009
